FAERS Safety Report 7456935-9 (Version None)
Quarter: 2011Q1

REPORT INFORMATION
  Report Type: 
  Country: None (occurrence: None)
  Receive Date: 20110302
  Receipt Date: 20101221
  Transmission Date: 20110831
  Serious: Yes (Other)
  Sender: FDA-Public Use
  Company Number: 024833

PATIENT
  Age: 62 Year
  Sex: Female

DRUGS (2)
  1. CIMZIA [Suspect]
     Indication: PSORIATIC ARTHROPATHY
     Dosage: (SUBCUTANEOUS), (SUBCUTANEOUS)
     Route: 058
  2. METHOTREXATE [Suspect]
     Dosage: (10 MG 1X/WEEK)

REACTIONS (1)
  - POROKERATOSIS [None]
